FAERS Safety Report 5009302-1 (Version None)
Quarter: 2006Q2

REPORT INFORMATION
  Report Type: 
  Country: None (occurrence: None)
  Receive Date: 20060524
  Receipt Date: 20060510
  Transmission Date: 20061013
  Serious: Yes (Hospitalization, Other)
  Sender: FDA-Public Use
  Company Number: PHBS2006JP07134

PATIENT
  Age: 8 Year
  Sex: Male

DRUGS (3)
  1. ZADITEN [Suspect]
     Indication: RHINITIS
     Dosage: 3 G/DAY
     Route: 048
     Dates: start: 20060401, end: 20060428
  2. ZADITEN [Suspect]
     Dosage: 3.6 G/DAY
     Route: 048
     Dates: start: 20060429, end: 20060501
  3. KUNIHIRO [Suspect]
     Route: 048
     Dates: start: 20060502, end: 20060504

REACTIONS (9)
  - DEPRESSED LEVEL OF CONSCIOUSNESS [None]
  - DRUG LEVEL ABOVE THERAPEUTIC [None]
  - DRUG SCREEN POSITIVE [None]
  - DRUG TOXICITY [None]
  - FEELING ABNORMAL [None]
  - HALLUCINATION, VISUAL [None]
  - INTENTIONAL OVERDOSE [None]
  - MICTURITION DISORDER [None]
  - MYDRIASIS [None]
